FAERS Safety Report 22154801 (Version 1)
Quarter: 2023Q1

REPORT INFORMATION
  Report Type: Spontaneous
  Country: CA (occurrence: CA)
  Receive Date: 20230330
  Receipt Date: 20230330
  Transmission Date: 20230417
  Serious: Yes (Hospitalization, Disabling, Other)
  Sender: FDA-Public Use
  Company Number: CA-002147023-NVSC2023CA067495

PATIENT
  Age: 72 Year
  Sex: Male

DRUGS (67)
  1. METHOTREXATE [Suspect]
     Active Substance: METHOTREXATE
     Indication: Product used for unknown indication
     Dosage: 7.5 MG
     Route: 065
  2. METHOTREXATE [Suspect]
     Active Substance: METHOTREXATE
     Dosage: 25 MG
     Route: 065
  3. METHOTREXATE [Suspect]
     Active Substance: METHOTREXATE
     Dosage: 20 MG
     Route: 065
  4. METHOTREXATE [Suspect]
     Active Substance: METHOTREXATE
     Dosage: UNK
     Route: 065
  5. METHOTREXATE [Suspect]
     Active Substance: METHOTREXATE
     Dosage: 15 MG
     Route: 065
  6. METHOTREXATE [Suspect]
     Active Substance: METHOTREXATE
     Dosage: 15 MG
     Route: 065
  7. METHOTREXATE [Suspect]
     Active Substance: METHOTREXATE
     Dosage: UNK
     Route: 065
  8. METHOTREXATE [Suspect]
     Active Substance: METHOTREXATE
     Dosage: 25 MG
     Route: 065
  9. METHOTREXATE [Suspect]
     Active Substance: METHOTREXATE
     Dosage: UNK
     Route: 065
  10. METHOTREXATE [Suspect]
     Active Substance: METHOTREXATE
     Dosage: UNK
     Route: 065
  11. METHOTREXATE [Suspect]
     Active Substance: METHOTREXATE
     Dosage: UNK
     Route: 065
  12. METHOTREXATE [Suspect]
     Active Substance: METHOTREXATE
     Dosage: UNK
     Route: 065
  13. SODIUM BICARBONATE [Suspect]
     Active Substance: SODIUM BICARBONATE
     Indication: Product used for unknown indication
     Dosage: UNK
     Route: 065
  14. FOLIC ACID [Suspect]
     Active Substance: FOLIC ACID
     Indication: Product used for unknown indication
     Dosage: 5 MG, QD, (1 EVERY ONE DAY)
     Route: 065
  15. FOLIC ACID [Suspect]
     Active Substance: FOLIC ACID
     Dosage: UNK
     Route: 065
  16. ALENDRONATE SODIUM [Suspect]
     Active Substance: ALENDRONATE SODIUM
     Indication: Product used for unknown indication
     Dosage: 70 MG
     Route: 065
  17. LANSOPRAZOLE [Suspect]
     Active Substance: LANSOPRAZOLE
     Indication: Product used for unknown indication
     Dosage: 30 MG, QD, (DELAYED RELEASE)
     Route: 065
  18. ALBUTEROL [Suspect]
     Active Substance: ALBUTEROL
     Indication: Eosinophilic granulomatosis with polyangiitis
     Dosage: UNK
     Route: 065
  19. ADVAIR HFA [Suspect]
     Active Substance: FLUTICASONE PROPIONATE\SALMETEROL XINAFOATE
     Indication: Eosinophilic granulomatosis with polyangiitis
     Dosage: 5 MG, BID, (2 EVERY ONE DAY)
     Route: 065
  20. ADVAIR HFA [Suspect]
     Active Substance: FLUTICASONE PROPIONATE\SALMETEROL XINAFOATE
     Dosage: UNK UNK, BID, (2 EVERY ONE DAY)
     Route: 065
  21. ADVAIR HFA [Suspect]
     Active Substance: FLUTICASONE PROPIONATE\SALMETEROL XINAFOATE
     Dosage: UNK
     Route: 065
  22. ADVAIR HFA [Suspect]
     Active Substance: FLUTICASONE PROPIONATE\SALMETEROL XINAFOATE
     Dosage: 1 DOSAGE FORM, BID, (2 EVERY ONE DAY)
     Route: 065
  23. ADVAIR HFA [Suspect]
     Active Substance: FLUTICASONE PROPIONATE\SALMETEROL XINAFOATE
     Dosage: UNK, BID, (2 EVERY ONE DAY)
     Route: 065
  24. ADVAIR HFA [Suspect]
     Active Substance: FLUTICASONE PROPIONATE\SALMETEROL XINAFOATE
     Dosage: 10 MG, QD, (1 EVERY ONE DAY)
     Route: 065
  25. ADVAIR HFA [Suspect]
     Active Substance: FLUTICASONE PROPIONATE\SALMETEROL XINAFOATE
     Dosage: 2 DOSAGE FORM, BID, (2 EVERY ONE DAY)
     Route: 065
  26. ADVAIR HFA [Suspect]
     Active Substance: FLUTICASONE PROPIONATE\SALMETEROL XINAFOATE
     Dosage: UNK
     Route: 065
  27. ADVAIR HFA [Suspect]
     Active Substance: FLUTICASONE PROPIONATE\SALMETEROL XINAFOATE
     Dosage: UNK
     Route: 065
  28. ADVAIR HFA [Suspect]
     Active Substance: FLUTICASONE PROPIONATE\SALMETEROL XINAFOATE
     Dosage: UNK
     Route: 065
  29. ADVAIR HFA [Suspect]
     Active Substance: FLUTICASONE PROPIONATE\SALMETEROL XINAFOATE
     Dosage: UNK
     Route: 065
  30. BICALUTAMIDE [Suspect]
     Active Substance: BICALUTAMIDE
     Indication: Product used for unknown indication
     Route: 048
  31. BICALUTAMIDE [Suspect]
     Active Substance: BICALUTAMIDE
     Dosage: 50 MG, QD, (1 EVERY ONE DAY)
     Route: 048
  32. CALCIUM [Suspect]
     Active Substance: CALCIUM
     Indication: Eosinophilic granulomatosis with polyangiitis
     Dosage: UNK
     Route: 065
  33. CYCLOPHOSPHAMIDE [Suspect]
     Active Substance: CYCLOPHOSPHAMIDE
     Indication: Product used for unknown indication
     Route: 042
  34. CYCLOPHOSPHAMIDE [Suspect]
     Active Substance: CYCLOPHOSPHAMIDE
     Dosage: 1200 MG
     Route: 042
  35. CYCLOPHOSPHAMIDE [Suspect]
     Active Substance: CYCLOPHOSPHAMIDE
     Dosage: 175 MG, QD, (1 EVERY ONE DAY)
     Route: 048
  36. FLUTICASONE [Suspect]
     Active Substance: FLUTICASONE
     Indication: Eosinophilic granulomatosis with polyangiitis
     Dosage: UNK
     Route: 065
  37. FOSAMAX [Suspect]
     Active Substance: ALENDRONATE SODIUM
     Indication: Product used for unknown indication
     Dosage: 70 MG
     Route: 048
  38. FOSAMAX [Suspect]
     Active Substance: ALENDRONATE SODIUM
     Dosage: UNK
     Route: 048
  39. FOSAMAX [Suspect]
     Active Substance: ALENDRONATE SODIUM
     Dosage: UNK
     Route: 048
  40. FOSAMAX [Suspect]
     Active Substance: ALENDRONATE SODIUM
     Dosage: UNK
     Route: 065
  41. OMNARIS [Suspect]
     Active Substance: CICLESONIDE
     Indication: Product used for unknown indication
     Dosage: UNK, (METERED DOSE, INTRANASAL)
     Route: 065
  42. OMNARIS [Suspect]
     Active Substance: CICLESONIDE
     Dosage: 2 DOSAGE FORM, (METERED DOSE, INTRANASAL)
     Route: 065
  43. OMNARIS [Suspect]
     Active Substance: CICLESONIDE
     Dosage: UNK, (METERED DOSE, INTRANASAL)
     Route: 065
  44. OMNARIS [Suspect]
     Active Substance: CICLESONIDE
     Dosage: UNK, (METERED DOSE, INTRANASAL)
     Route: 065
  45. PREDNISONE [Suspect]
     Active Substance: PREDNISONE
     Indication: Product used for unknown indication
     Dosage: 2 MG, QD, (1 EVERY ONE DAY)
     Route: 065
  46. PREDNISONE [Suspect]
     Active Substance: PREDNISONE
     Dosage: UNK
     Route: 065
  47. PREDNISONE [Suspect]
     Active Substance: PREDNISONE
     Dosage: UNK
     Route: 065
  48. PREDNISONE [Suspect]
     Active Substance: PREDNISONE
     Dosage: 5 MG, QD, (1 EVERY ONE DAY)
     Route: 065
  49. PREDNISONE [Suspect]
     Active Substance: PREDNISONE
     Dosage: 10 MG, QD, (1 EVERY ONE DAY)
     Route: 065
  50. PREDNISONE [Suspect]
     Active Substance: PREDNISONE
     Dosage: 7.5 MG, QD, (1 EVERY ONE DAY)
     Route: 065
  51. PREDNISONE [Suspect]
     Active Substance: PREDNISONE
     Dosage: UNK
     Route: 065
  52. PREDNISONE [Suspect]
     Active Substance: PREDNISONE
     Dosage: 2 MG, QD, (1 EVERY ONE DAY)
     Route: 065
  53. PREDNISONE [Suspect]
     Active Substance: PREDNISONE
     Dosage: 2 MG, QD, (1 EVERY ONE DAY)
     Route: 065
  54. PREDNISONE [Suspect]
     Active Substance: PREDNISONE
     Dosage: UNK
     Route: 065
  55. RAMIPRIL [Suspect]
     Active Substance: RAMIPRIL
     Indication: Product used for unknown indication
     Dosage: 10 MG
     Route: 065
  56. RAMIPRIL [Suspect]
     Active Substance: RAMIPRIL
     Dosage: 10 MG, QD, (1 EVERY ONE DAY)
     Route: 065
  57. SODIUM BICARBONATE\SODIUM CHLORIDE [Suspect]
     Active Substance: SODIUM BICARBONATE\SODIUM CHLORIDE
     Indication: Product used for unknown indication
     Dosage: UNK, (NASAL)
     Route: 048
  58. SODIUM BICARBONATE\SODIUM CHLORIDE [Suspect]
     Active Substance: SODIUM BICARBONATE\SODIUM CHLORIDE
     Dosage: UNK
     Route: 048
  59. SULFAMETHOXAZOLE AND TRIMETHOPRIM [Suspect]
     Active Substance: SULFAMETHOXAZOLE\TRIMETHOPRIM
     Indication: Product used for unknown indication
     Dosage: UNK
     Route: 065
  60. VENTOLIN [Suspect]
     Active Substance: ALBUTEROL SULFATE
     Indication: Eosinophilic granulomatosis with polyangiitis
     Dosage: UNK
     Route: 065
  61. VITAMIN D NOS [Suspect]
     Active Substance: VITAMIN D NOS
     Indication: Product used for unknown indication
     Dosage: UNK
     Route: 065
  62. ZOLADEX [Suspect]
     Active Substance: GOSERELIN ACETATE
     Indication: Product used for unknown indication
     Dosage: UNK
     Route: 058
  63. ZOLADEX [Suspect]
     Active Substance: GOSERELIN ACETATE
     Dosage: UNK, (IMPLANT)
     Route: 058
  64. EDETATE CALCIUM DISODIUM [Suspect]
     Active Substance: EDETATE CALCIUM DISODIUM
     Indication: Product used for unknown indication
     Dosage: UNK
     Route: 065
  65. EDETATE CALCIUM DISODIUM [Suspect]
     Active Substance: EDETATE CALCIUM DISODIUM
     Dosage: UNK
     Route: 065
  66. EDETATE CALCIUM DISODIUM [Suspect]
     Active Substance: EDETATE CALCIUM DISODIUM
     Dosage: UNK
     Route: 065
  67. EDETATE CALCIUM DISODIUM [Suspect]
     Active Substance: EDETATE CALCIUM DISODIUM
     Dosage: UNK
     Route: 065

REACTIONS (34)
  - Airway remodelling [Unknown]
  - Atopy [Unknown]
  - Blood immunoglobulin E increased [Unknown]
  - Cardiac septal defect [Unknown]
  - Central nervous system mass [Unknown]
  - Chronic sinusitis [Unknown]
  - Condition aggravated [Unknown]
  - Confusional state [Unknown]
  - Eosinophil count increased [Unknown]
  - Wall motion score index abnormal [Unknown]
  - Eosinophilic granulomatosis with polyangiitis [Unknown]
  - Eosinophilic myocarditis [Unknown]
  - Eosinophilic pneumonia [Unknown]
  - Haematuria [Unknown]
  - Haemorrhage [Unknown]
  - Hypertension [Unknown]
  - Lacrimation increased [Unknown]
  - Lymphopenia [Unknown]
  - Memory impairment [Unknown]
  - Microangiopathy [Unknown]
  - Nasal polyps [Unknown]
  - Nodule [Unknown]
  - Obesity [Unknown]
  - Obstructive airways disorder [Unknown]
  - Pneumonia [Unknown]
  - Productive cough [Unknown]
  - Prostate cancer [Unknown]
  - Renal disorder [Unknown]
  - Respiratory symptom [Unknown]
  - Respiratory tract infection [Unknown]
  - Ventricular hypokinesia [Unknown]
  - Viral infection [Unknown]
  - Asthma [Unknown]
  - Eosinophil count decreased [Unknown]
